FAERS Safety Report 8276021-8 (Version None)
Quarter: 2012Q2

REPORT INFORMATION
  Report Type: 
  Country: None (occurrence: None)
  Receive Date: 20120406
  Receipt Date: 20120328
  Transmission Date: 20120825
  Serious: Yes (Other)
  Sender: FDA-Public Use
  Company Number: 2012SP016959

PATIENT
  Sex: Female

DRUGS (2)
  1. PEG-INTRON [Suspect]
     Indication: HEPATITIS C
     Dates: start: 20120110
  2. RIBAVIRIN [Suspect]
     Indication: HEPATITIS C
     Dates: start: 20120110

REACTIONS (4)
  - FATIGUE [None]
  - ANXIETY [None]
  - INSOMNIA [None]
  - PARANOIA [None]
